FAERS Safety Report 17075763 (Version 1)
Quarter: 2019Q4

REPORT INFORMATION
  Report Type: Spontaneous
  Country: US (occurrence: US)
  Receive Date: 20191125
  Receipt Date: 20191125
  Transmission Date: 20200122
  Serious: Yes (Hospitalization)
  Sender: FDA-Public Use
  Company Number: None

PATIENT
  Age: 70 Year
  Sex: Male

DRUGS (13)
  1. DIGOXIN TAB 0.125 MG [Concomitant]
  2. FLONASE ALGY SPR 50 MCG [Concomitant]
  3. JANUVIA TAB 50 MG [Concomitant]
  4. LASIX TAB 80 MG [Concomitant]
  5. DOXAZOSIN TAB 1 MG [Concomitant]
  6. ULORIC TAB 80 MG [Concomitant]
  7. LIPITOR TAB 20 MG [Concomitant]
  8. AMARYL TAB 4 MG [Concomitant]
  9. WELCHOL PAK 3.75 GM [Concomitant]
  10. NOVAREL INJ 10000 UNIT [Concomitant]
  11. IMATINIB. [Suspect]
     Active Substance: IMATINIB MESYLATE
     Indication: PRODUCT USED FOR UNKNOWN INDICATION
     Route: 048
     Dates: start: 20180328
  12. CARVEDILOL TAB 25 MG [Concomitant]
  13. NITROGLYCER DIS 0.4 MG/HR [Concomitant]

REACTIONS (2)
  - Hospitalisation [None]
  - Therapy cessation [None]

NARRATIVE: CASE EVENT DATE: 20191106
